FAERS Safety Report 15440844 (Version 3)
Quarter: 2018Q4

REPORT INFORMATION
  Report Type: Spontaneous
  Country: JP (occurrence: JP)
  Receive Date: 20180928
  Receipt Date: 20181205
  Transmission Date: 20190204
  Serious: Yes (Hospitalization)
  Sender: FDA-Public Use
  Company Number: JP-JNJFOC-20180934649

PATIENT
  Age: 28 Year
  Sex: Male
  Weight: 64 kg

DRUGS (5)
  1. DEXART [Concomitant]
     Active Substance: DEXAMETHASONE SODIUM PHOSPHATE
     Indication: PROPHYLAXIS OF NAUSEA AND VOMITING
     Route: 041
     Dates: start: 20180830, end: 20180830
  2. DEXART [Concomitant]
     Active Substance: DEXAMETHASONE SODIUM PHOSPHATE
     Indication: PROPHYLAXIS OF NAUSEA AND VOMITING
     Route: 041
     Dates: start: 20180831, end: 20180901
  3. YONDELIS [Suspect]
     Active Substance: TRABECTEDIN
     Indication: CHONDROSARCOMA METASTATIC
     Dosage: A 24-HOUR INFUSION
     Route: 041
     Dates: start: 20180830
  4. YONDELIS [Suspect]
     Active Substance: TRABECTEDIN
     Indication: CHONDROSARCOMA METASTATIC
     Dosage: 24-HOUR INFUSION
     Route: 041
     Dates: start: 20181018
  5. URSO [Concomitant]
     Active Substance: URSODIOL
     Indication: HEPATIC FUNCTION ABNORMAL
     Route: 048
     Dates: start: 20180829, end: 20180912

REACTIONS (2)
  - Hepatic function abnormal [Recovering/Resolving]
  - Pneumonia [Recovered/Resolved]

NARRATIVE: CASE EVENT DATE: 20180903
